FAERS Safety Report 17080923 (Version 3)
Quarter: 2019Q4

REPORT INFORMATION
  Report Type: Spontaneous
  Country: US (occurrence: US)
  Receive Date: 20191127
  Receipt Date: 20191230
  Transmission Date: 20200122
  Serious: No
  Sender: FDA-Public Use
  Company Number: US-009507513-1910USA016582

PATIENT
  Age: 23 Year
  Sex: Female
  Weight: 52.15 kg

DRUGS (2)
  1. NUVARING [Suspect]
     Active Substance: ETHINYL ESTRADIOL\ETONOGESTREL
     Dosage: 1 RING IN 3 WEEKS THEN OUT 3 WEEKS
     Route: 067
     Dates: start: 20191013, end: 20191028
  2. NUVARING [Suspect]
     Active Substance: ETHINYL ESTRADIOL\ETONOGESTREL
     Indication: CONTRACEPTION
     Dosage: 1 RING, IN 3 WEEKS THEN OUT 3 WEEKS
     Route: 067
     Dates: start: 20181022, end: 20190922

REACTIONS (5)
  - Medical device site discomfort [Recovering/Resolving]
  - Medical device site irritation [Recovering/Resolving]
  - Inappropriate schedule of product administration [Unknown]
  - Device breakage [Unknown]
  - Device expulsion [Unknown]

NARRATIVE: CASE EVENT DATE: 20181203
